FAERS Safety Report 6969839 (Version 3)
Quarter: 2018Q3

REPORT INFORMATION
  Report Type: Spontaneous
  Country: FR (occurrence: FR)
  Receive Date: 20090415
  Receipt Date: 20180726
  Transmission Date: 20181010
  Serious: Yes (Other)
  Sender: FDA-Public Use
  Company Number: FR-ASTRAZENECA-2009CG00661

PATIENT
  Age: 0 Week
  Sex: Female

DRUGS (1)
  1. TAMOXIFEN [Suspect]
     Active Substance: TAMOXIFEN
     Route: 064
     Dates: start: 20080315

REACTIONS (1)
  - Enlarged clitoris [Not Recovered/Not Resolved]

NARRATIVE: CASE EVENT DATE: 200808
